FAERS Safety Report 8543762-4 (Version None)
Quarter: 2012Q3

REPORT INFORMATION
  Report Type: 
  Country: None (occurrence: None)
  Receive Date: 20120727
  Receipt Date: 20120718
  Transmission Date: 20120928
  Serious: Yes (Other)
  Sender: FDA-Public Use
  Company Number: LA-JNJFOC-20120521501

PATIENT

DRUGS (2)
  1. VERMOX [Suspect]
     Indication: ANTI-INFECTIVE THERAPY
     Route: 065
     Dates: start: 20120402
  2. VERMOX [Suspect]
     Indication: PROPHYLAXIS
     Route: 065
     Dates: start: 20120402

REACTIONS (11)
  - CONJUNCTIVITIS [None]
  - FATIGUE [None]
  - ANGIOEDEMA [None]
  - HEADACHE [None]
  - PRURITUS GENERALISED [None]
  - GASTROINTESTINAL DISORDER [None]
  - SWELLING [None]
  - DYSPNOEA [None]
  - PYREXIA [None]
  - DIZZINESS [None]
  - OROPHARYNGEAL PAIN [None]
